FAERS Safety Report 8392989-3 (Version None)
Quarter: 2012Q2

REPORT INFORMATION
  Report Type: 
  Country: None (occurrence: None)
  Receive Date: 20120529
  Receipt Date: 20120518
  Transmission Date: 20120825
  Serious: Yes (Hospitalization)
  Sender: FDA-Public Use
  Company Number: JP-ASTRAZENECA-2012SE25752

PATIENT
  Age: 76 Year
  Sex: Male
  Weight: 78 kg

DRUGS (11)
  1. PREDNISOLONE [Concomitant]
     Indication: GLOMERULONEPHRITIS MEMBRANOUS
     Route: 048
     Dates: start: 20120120
  2. LASIX [Concomitant]
     Indication: OEDEMA
     Route: 048
     Dates: start: 20120119, end: 20120224
  3. ALENDRONATE SODIUM [Concomitant]
     Indication: OSTEOPOROSIS
     Route: 048
     Dates: start: 20120120, end: 20120214
  4. LENDORMIN [Concomitant]
     Indication: INSOMNIA
     Route: 048
     Dates: start: 20120125, end: 20120214
  5. CRESTOR [Suspect]
     Route: 048
     Dates: start: 20120215, end: 20120306
  6. RABEPRAZOLE SODIUM [Concomitant]
     Indication: GASTRITIS
     Route: 048
     Dates: start: 20120120, end: 20120214
  7. FLUCONAZOLE [Concomitant]
     Indication: INFECTION PROPHYLAXIS
     Route: 048
     Dates: start: 20120120, end: 20120214
  8. CRESTOR [Suspect]
     Route: 048
     Dates: start: 20120131, end: 20120204
  9. CRESTOR [Suspect]
     Indication: HYPERCHOLESTEROLAEMIA
     Route: 048
     Dates: end: 20120130
  10. COTRIM [Concomitant]
     Indication: INFECTION PROPHYLAXIS
     Route: 048
     Dates: start: 20120120, end: 20120214
  11. ZETIA [Concomitant]
     Indication: HYPERCHOLESTEROLAEMIA
     Route: 048
     Dates: start: 20120206, end: 20120214

REACTIONS (1)
  - LIVER DISORDER [None]
